FAERS Safety Report 25786669 (Version 1)
Quarter: 2025Q3

REPORT INFORMATION
  Report Type: Spontaneous
  Country: US (occurrence: None)
  Receive Date: 20250910
  Receipt Date: 20250910
  Transmission Date: 20251021
  Serious: Yes (Death)
  Sender: FDA-CTU
  Company Number: None

PATIENT

DRUGS (1)
  1. ZYTIGA [Suspect]
     Active Substance: ABIRATERONE ACETATE

REACTIONS (8)
  - General physical health deterioration [None]
  - Oropharyngeal discomfort [None]
  - Oral disorder [None]
  - Fluid intake reduced [None]
  - Product use complaint [None]
  - Product size issue [None]
  - Tongue rough [None]
  - Wrong technique in product usage process [None]
